FAERS Safety Report 20862694 (Version 1)
Quarter: 2022Q2

REPORT INFORMATION
  Report Type: Spontaneous
  Country: US (occurrence: None)
  Receive Date: 20220523
  Receipt Date: 20220523
  Transmission Date: 20220721
  Serious: Yes (Hospitalization)
  Sender: FDA-Public Use
  Company Number: None

PATIENT
  Age: 73 Year
  Sex: Male
  Weight: 78 kg

DRUGS (2)
  1. LENALIDOMIDE [Suspect]
     Active Substance: LENALIDOMIDE
     Indication: Plasma cell myeloma
     Dosage: FREQUENCY : DAILY;?
     Route: 048
     Dates: start: 20211230, end: 20220225
  2. AZITHROMYCIN [Suspect]
     Active Substance: AZITHROMYCIN
     Indication: Pneumonia
     Dosage: FREQUENCY : DAILY;?
     Route: 048
     Dates: start: 20220207, end: 20220212

REACTIONS (12)
  - Respiratory failure [None]
  - Lung infiltration [None]
  - Hypoxia [None]
  - Eosinophilia [None]
  - Rash [None]
  - Thrombocytopenia [None]
  - Liver function test increased [None]
  - Acute kidney injury [None]
  - Proteinuria [None]
  - Drug reaction with eosinophilia and systemic symptoms [None]
  - Skin toxicity [None]
  - Therapy interrupted [None]

NARRATIVE: CASE EVENT DATE: 20220218
